FAERS Safety Report 16811484 (Version 3)
Quarter: 2019Q4

REPORT INFORMATION
  Report Type: Spontaneous
  Country: US (occurrence: US)
  Receive Date: 20190916
  Receipt Date: 20191122
  Transmission Date: 20200122
  Serious: No
  Sender: FDA-Public Use
  Company Number: US-SA-2019SA255801

PATIENT
  Age: 44 Year
  Sex: Female
  Weight: 79.37 kg

DRUGS (18)
  1. ACETAMINOPHEN. [Concomitant]
     Active Substance: ACETAMINOPHEN
     Dosage: 2 TABLETS, EVERY 4-6HRS PRN
     Route: 048
     Dates: start: 20190725
  2. DIPHENHYDRAMINE. [Concomitant]
     Active Substance: DIPHENHYDRAMINE
     Indication: ANAPHYLACTIC REACTION
     Dosage: 25 MG, PRN
     Route: 048
     Dates: start: 20190726
  3. LIDOCAINE/PRILOCAINE [Concomitant]
     Active Substance: LIDOCAINE\PRILOCAINE
     Indication: ANAPHYLACTIC REACTION
     Dosage: 2.5 %, PRN
     Route: 061
     Dates: start: 20190726
  4. CALCIUM 600 + D [Concomitant]
     Active Substance: CALCIUM\VITAMIN D
     Dosage: 1 TABLET, QD
     Route: 048
     Dates: start: 20150505
  5. MULTIVITAMINS [VITAMINS NOS] [Concomitant]
     Active Substance: VITAMINS
     Dosage: 1 TABLET, QD
     Route: 048
     Dates: start: 20141110
  6. STERILE WATER [Concomitant]
     Active Substance: WATER
     Dosage: UNK
     Dates: start: 20190726
  7. DOCUSATE [Concomitant]
     Active Substance: DOCUSATE
     Dosage: 1 DF(CAP), QD
     Route: 048
     Dates: start: 20191115
  8. FLUTICASONE. [Concomitant]
     Active Substance: FLUTICASONE
     Dosage: 1 SPRAY EACH NOSTRIL, BID
     Route: 045
     Dates: start: 20170502
  9. CLARITIN [Concomitant]
     Active Substance: LORATADINE
     Indication: PREMEDICATION
     Dosage: 1 TABLET, QD
     Route: 048
     Dates: start: 20141110
  10. PEPCID [ALUMINIUM HYDROXIDE;MAGNESIUM TRISILICATE;SODIUM ALGINATE] [Concomitant]
     Dosage: 20 MG, PRN
     Route: 042
     Dates: start: 20190726
  11. EPINEPHRINE. [Concomitant]
     Active Substance: EPINEPHRINE
     Indication: ANAPHYLACTIC REACTION
     Dosage: 0.3 MG, PRN
     Route: 030
     Dates: start: 20190726
  12. VITAMIN D3 [Concomitant]
     Active Substance: CHOLECALCIFEROL
     Dosage: 2 CAPSULES, ONCE QD
     Route: 048
     Dates: start: 20190405
  13. METHIMAZOLE. [Concomitant]
     Active Substance: METHIMAZOLE
     Dosage: 5 MG, BIW
     Route: 048
     Dates: start: 20190906
  14. ACETAMINOPHEN. [Concomitant]
     Active Substance: ACETAMINOPHEN
     Indication: PREMEDICATION
     Dosage: 1000 MG, UNK
     Route: 048
     Dates: start: 20190726
  15. ASPIRIN [ACETYLSALICYLIC ACID] [Concomitant]
     Active Substance: ASPIRIN
     Dosage: 1 TABLET, QD
     Route: 048
     Dates: start: 20141110
  16. FABRAZYME [Suspect]
     Active Substance: AGALSIDASE BETA
     Indication: FABRY^S DISEASE
     Dosage: 0.98 MG, QOW
     Route: 042
     Dates: start: 20141016
  17. DROSPIRENONE;ETHINYLESTRADIOL [Concomitant]
     Active Substance: DROSPIRENONE\ETHINYL ESTRADIOL
     Dosage: 1 TABLET, QD
     Route: 048
     Dates: start: 20180215
  18. NORMAL SALINE [Concomitant]
     Active Substance: SODIUM CHLORIDE
     Dosage: 0.90 %
     Dates: start: 20190726

REACTIONS (4)
  - Anaemia [Unknown]
  - Lacrimation increased [Unknown]
  - Fatigue [Recovering/Resolving]
  - Eye pruritus [Unknown]

NARRATIVE: CASE EVENT DATE: 20190905
